FAERS Safety Report 9474465 (Version 1)
Quarter: 2013Q3

REPORT INFORMATION
  Report Type: Spontaneous
  Country: LB (occurrence: LB)
  Receive Date: 20130823
  Receipt Date: 20130823
  Transmission Date: 20140515
  Serious: Yes (Hospitalization)
  Sender: FDA-Public Use
  Company Number: LB-ABBOTT-13P-093-1133945-00

PATIENT
  Age: 49 Year
  Sex: Female
  Weight: 55 kg

DRUGS (3)
  1. HUMIRA [Suspect]
     Indication: CROHN^S DISEASE
     Route: 058
     Dates: start: 20130503, end: 20130503
  2. HUMIRA [Suspect]
     Route: 058
     Dates: end: 20130710
  3. CALCIUM [Concomitant]
     Indication: HYPOCALCAEMIA
     Route: 048

REACTIONS (5)
  - Hypocalcaemia [Unknown]
  - Colectomy [Unknown]
  - Abdominal pain [Unknown]
  - Wound infection [Unknown]
  - Infection [Unknown]
